FAERS Safety Report 6742492-9 (Version None)
Quarter: 2010Q2

REPORT INFORMATION
  Report Type: 
  Country: None (occurrence: None)
  Receive Date: 20100526
  Receipt Date: 20100517
  Transmission Date: 20101027
  Serious: Yes (Hospitalization)
  Sender: FDA-Public Use
  Company Number: DE-ROCHE-690782

PATIENT
  Sex: Female
  Weight: 86 kg

DRUGS (5)
  1. CAPECITABINE [Suspect]
     Indication: RECTAL CANCER
     Dosage: 1000 MG/M2 TWICE DAILY ON DAY 1 TO DAY 15 OF 3 WEEK CYCLE; LAST DOSE PRIOR TO SAE ON 26 FEB 2010
     Route: 048
     Dates: start: 20091005, end: 20100329
  2. OXALIPLATIN [Suspect]
     Indication: RECTAL CANCER
     Dosage: 130 MG/M2 ON DAY 1 OF 3 WEEK CYCLE; LAST DOSE PRIOR TO SAE ON 15 FEB 2010; FORM INFUSION
     Route: 042
     Dates: start: 20091005, end: 20100329
  3. ATENOLOL [Concomitant]
     Indication: HYPERTENSION
     Dosage: FREQUENCY: ONCE
     Route: 048
     Dates: start: 20050101
  4. AMLODIPINE [Concomitant]
     Indication: HYPERTENSION
     Dosage: FREQUENCY: ONCE
     Route: 048
     Dates: start: 20020101
  5. SULPIRIDE [Concomitant]
     Dosage: FREQUENCY: ONCE, DRUG NAME: SULPIVERT
     Route: 048
     Dates: start: 20000101

REACTIONS (1)
  - GLOMERULONEPHRITIS MINIMAL LESION [None]
